FAERS Safety Report 7365861-5 (Version None)
Quarter: 2011Q1

REPORT INFORMATION
  Report Type: 
  Country: None (occurrence: None)
  Receive Date: 20110316
  Receipt Date: 20110316
  Transmission Date: 20110831
  Serious: Yes (Other)
  Sender: FDA-Public Use
  Company Number: None

PATIENT
  Age: 35 Year
  Sex: Female
  Weight: 55.7924 kg

DRUGS (2)
  1. OMNICEF [Concomitant]
  2. LEVAQUIN [Suspect]
     Indication: SINUSITIS
     Dosage: 1 DAY PO
     Route: 048
     Dates: start: 20110311, end: 20110313

REACTIONS (10)
  - ANXIETY [None]
  - INSOMNIA [None]
  - DEPRESSION [None]
  - THINKING ABNORMAL [None]
  - HEADACHE [None]
  - TREMOR [None]
  - MYOCARDIAL INFARCTION [None]
  - CHEST PAIN [None]
  - CHILLS [None]
  - NIGHTMARE [None]
